FAERS Safety Report 17389987 (Version 2)
Quarter: 2021Q2

REPORT INFORMATION
  Report Type: Spontaneous
  Country: US (occurrence: US)
  Receive Date: 20200207
  Receipt Date: 20210607
  Transmission Date: 20210716
  Serious: Yes (Death)
  Sender: FDA-Public Use
  Company Number: US-TEVA-2020-US-1181210

PATIENT
  Age: 75 Year
  Sex: Female
  Weight: 77.96 kg

DRUGS (16)
  1. CARVEDILOL. [Concomitant]
     Active Substance: CARVEDILOL
     Route: 048
  2. LOSARTAN. [Concomitant]
     Active Substance: LOSARTAN
     Route: 065
  3. SALINE NASAL SPRAY [Concomitant]
     Active Substance: SODIUM CHLORIDE
     Indication: NASAL DRYNESS
     Route: 045
  4. VALSARTAN SOLCO [Suspect]
     Active Substance: VALSARTAN
     Indication: HYPERTENSION
     Route: 048
     Dates: start: 20151229, end: 20171228
  5. VALSARTAN MYLAN PHARMACEUTICALS [Suspect]
     Active Substance: VALSARTAN
     Route: 065
  6. VITAMIN D [Concomitant]
     Active Substance: VITAMIN D NOS
     Indication: VITAMIN D DECREASED
     Route: 065
  7. VALSARTAN ACTAVIS [Suspect]
     Active Substance: VALSARTAN
     Indication: HYPERTENSION
     Route: 048
     Dates: start: 20150312, end: 20160103
  8. VALSARTAN MYLAN PHARMACEUTICALS [Suspect]
     Active Substance: VALSARTAN
     Route: 065
  9. MYLANTA [Concomitant]
     Active Substance: ALUMINUM HYDROXIDE\DIMETHICONE\MAGNESIUM HYDROXIDE
     Indication: GASTROOESOPHAGEAL REFLUX DISEASE
     Route: 065
  10. VALSARTAN PAR PHARMA [Suspect]
     Active Substance: VALSARTAN
     Route: 065
  11. SIMVASTATIN. [Concomitant]
     Active Substance: SIMVASTATIN
     Indication: BLOOD CHOLESTEROL INCREASED
     Route: 048
     Dates: end: 20200331
  12. VALSARTAN MACLEODS [Suspect]
     Active Substance: VALSARTAN
     Route: 065
  13. VALSARTAN MACLEODS [Suspect]
     Active Substance: VALSARTAN
     Route: 065
  14. OMEGA?3 ACIDS [Concomitant]
     Active Substance: OMEGA-3 FATTY ACIDS
     Indication: CARDIAC DISORDER
     Route: 048
  15. VALSARTAN OHM LABORATORIES [Suspect]
     Active Substance: VALSARTAN
     Route: 065
  16. TYLENOL [Concomitant]
     Active Substance: ACETAMINOPHEN
     Indication: PAIN
     Dosage: AS DIRECTED
     Route: 048

REACTIONS (1)
  - Adenocarcinoma of colon [Fatal]
